FAERS Safety Report 16345810 (Version 1)
Quarter: 2019Q2

REPORT INFORMATION
  Report Type: Spontaneous
  Country: US (occurrence: US)
  Receive Date: 20190523
  Receipt Date: 20190523
  Transmission Date: 20190711
  Serious: No
  Sender: FDA-Public Use
  Company Number: US-JNJFOC-20190509879

PATIENT
  Sex: Male
  Weight: 108.86 kg

DRUGS (2)
  1. CEFADROXIL. [Concomitant]
     Active Substance: CEFADROXIL
     Indication: STAPHYLOCOCCAL INFECTION
     Route: 065
  2. XARELTO [Suspect]
     Active Substance: RIVAROXABAN
     Indication: THROMBOSIS
     Route: 048
     Dates: start: 201901

REACTIONS (1)
  - Muscle tightness [Not Recovered/Not Resolved]

NARRATIVE: CASE EVENT DATE: 20190507
